FAERS Safety Report 21626540 (Version 1)
Quarter: 2022Q4

REPORT INFORMATION
  Report Type: Spontaneous
  Country: US (occurrence: US)
  Receive Date: 20221122
  Receipt Date: 20221122
  Transmission Date: 20230113
  Serious: Yes (Other)
  Sender: FDA-Public Use
  Company Number: US-BRISTOL-MYERS SQUIBB COMPANY-2022-140649

PATIENT
  Age: 66 Year
  Sex: Male

DRUGS (1)
  1. REVLIMID [Suspect]
     Active Substance: LENALIDOMIDE
     Indication: Plasma cell myeloma
     Dosage: DAILY ON DAYS 1 THROUGH 21 OF EACH 28 DAY CYCLE. TAKE WHOLE WITH WATER, AT THE SAME TIME EACH DAY
     Route: 048
     Dates: start: 20221022

REACTIONS (1)
  - Neuropathy peripheral [Not Recovered/Not Resolved]
